FAERS Safety Report 18316000 (Version 1)
Quarter: 2020Q3

REPORT INFORMATION
  Report Type: Spontaneous
  Country: DE (occurrence: DE)
  Receive Date: 20200927
  Receipt Date: 20200927
  Transmission Date: 20201103
  Serious: Yes (Life-Threatening, Hospitalization, Other)
  Sender: FDA-Public Use
  Company Number: DE-TEVA-2020-DE-1831252

PATIENT
  Age: 86 Year
  Sex: Female

DRUGS (13)
  1. FLUTICASON/SALMETEROL [Concomitant]
     Dosage: 1 DOSAGE FORMS DAILY; 500/50 MICROGRAM, 1?0?0?0, CAPSULES
     Route: 055
  2. BRETARIS GENUAIR 322MIKROGRAMM [Concomitant]
     Dosage: 322 MICROGRAM DAILY; 322 MICROGRAM, 1?0?0?0, METERED DOSE AEROSOL
     Route: 055
  3. SALBUTAMOL [Concomitant]
     Active Substance: ALBUTEROL
     Dosage: .2 MILLIGRAM DAILY; 0.1 MG, 1?0?1?0, AEROSOL DOSING
     Route: 055
  4. ACETYLSALICYLSAURE [Concomitant]
     Active Substance: ASPIRIN
     Dosage: 100 MILLIGRAM DAILY; 100 MG, 1?0?0?0, TABLETS
     Route: 048
  5. CANDESARTAN. [Concomitant]
     Active Substance: CANDESARTAN
     Dosage: 1 DOSAGE FORMS DAILY; 32 MG, 0.5?0?0.5?0, TABLETS
     Route: 048
  6. PROPIVERIN [Concomitant]
     Active Substance: PROPIVERINE
     Dosage: 30 MILLIGRAM DAILY; 30 MG, 0?0?1?0, CAPSULES
     Route: 048
  7. INDAPAMID [Suspect]
     Active Substance: INDAPAMIDE
     Dosage: 2.5 MILLIGRAM DAILY; 2.5 MG, 1?0?0?0, TABLETS
     Route: 048
  8. COLECALCIFEROL (VITAMIN D) [Concomitant]
     Dosage: 2 DOSAGE FORMS DAILY; 20,000 IU / ML, 2?0?0?0, DROPS
     Route: 048
  9. NITRENDIPIN [Concomitant]
     Active Substance: NITRENDIPINE
     Dosage: 40 MILLIGRAM DAILY; 20 MG, 1?0?1?0, TABLETS
     Route: 048
  10. METFORMIN/SITAGLIPTIN [Concomitant]
     Active Substance: METFORMIN\SITAGLIPTIN
     Dosage: 1 DOSAGE FORMS DAILY; 1000/50 MG, 1?0?0?0, TABLETS
     Route: 048
  11. METFORMIN [Concomitant]
     Active Substance: METFORMIN HYDROCHLORIDE
     Dosage: 1000 MILLIGRAM DAILY; 1000 MG, 0?0?1?0, TABLETS
     Route: 048
  12. PANTOPRAZOL [Concomitant]
     Active Substance: PANTOPRAZOLE SODIUM
     Dosage: 20 MG/2 DAY, 1?0?0?0, TABLETS
     Route: 048
  13. BISOPROLOL [Concomitant]
     Active Substance: BISOPROLOL
     Dosage: .5 DOSAGE FORMS DAILY; 10 MG, 0.5?0?0?0, TABLETS
     Route: 048

REACTIONS (9)
  - Sepsis [Unknown]
  - Respiratory failure [Unknown]
  - Nausea [Unknown]
  - Dehydration [Unknown]
  - Dizziness [Unknown]
  - Electrolyte imbalance [Unknown]
  - Brain stem infarction [Unknown]
  - Headache [Unknown]
  - General physical health deterioration [Unknown]
